FAERS Safety Report 9648104 (Version 1)
Quarter: 2013Q4

REPORT INFORMATION
  Report Type: Report from Study
  Country: BR (occurrence: BR)
  Receive Date: 20131028
  Receipt Date: 20131028
  Transmission Date: 20140711
  Serious: Yes (Hospitalization)
  Sender: FDA-Public Use
  Company Number: BR-ROCHE-1292734

PATIENT
  Sex: Female
  Weight: 54 kg

DRUGS (3)
  1. ACTEMRA [Suspect]
     Indication: RHEUMATOID ARTHRITIS
     Dosage: LATEST INFUSION WAS ON 01/SEP/2013
     Route: 042
     Dates: start: 20090911
  2. METICORTEN [Concomitant]
     Dosage: ON ALTERNATE DAYS
     Route: 065
  3. NAPROXEN [Concomitant]
     Indication: PAIN
     Route: 065

REACTIONS (5)
  - Nephrolithiasis [Unknown]
  - Thrombosis [Unknown]
  - Influenza [Recovered/Resolved]
  - Tympanic membrane disorder [Recovered/Resolved]
  - Dysphonia [Recovered/Resolved]
